FAERS Safety Report 20757939 (Version 1)
Quarter: 2022Q2

REPORT INFORMATION
  Report Type: Spontaneous
  Country: US (occurrence: None)
  Receive Date: 20220426
  Receipt Date: 20220426
  Transmission Date: 20220721
  Serious: Yes (Life-Threatening, Other)
  Sender: FDA-Public Use
  Company Number: None

PATIENT
  Sex: Male
  Weight: 70.65 kg

DRUGS (7)
  1. INLYTA [Suspect]
     Active Substance: AXITINIB
     Indication: Renal cancer
     Dosage: FREQUENCY : TWICE A DAY;?
     Route: 048
  2. diclofenac 1% external gel [Concomitant]
  3. hydrocortisone 2.5% external cream [Concomitant]
  4. LOSARTAN [Concomitant]
     Active Substance: LOSARTAN
  5. METOPROLOL TARTRATE [Concomitant]
     Active Substance: METOPROLOL TARTRATE
  6. VITAMINS [Concomitant]
     Active Substance: VITAMINS
  7. KEYTRUDA [Concomitant]
     Active Substance: PEMBROLIZUMAB

REACTIONS (4)
  - Diarrhoea [None]
  - Dysphonia [None]
  - Fatigue [None]
  - Hypertensive emergency [None]
